FAERS Safety Report 12833132 (Version 3)
Quarter: 2016Q4

REPORT INFORMATION
  Report Type: Spontaneous
  Country: TW (occurrence: TW)
  Receive Date: 20161010
  Receipt Date: 20161110
  Transmission Date: 20170207
  Serious: Yes (Other)
  Sender: FDA-Public Use
  Company Number: TW-SA-2016SA183409

PATIENT
  Age: 71 Year
  Sex: Female

DRUGS (14)
  1. CLOPIDOGREL BISULFATE. [Suspect]
     Active Substance: CLOPIDOGREL BISULFATE
     Indication: CORONARY ARTERY DISEASE
     Route: 065
     Dates: start: 20130913
  2. VALSARTAN. [Concomitant]
     Active Substance: VALSARTAN
  3. ALFACALCIDOL [Concomitant]
     Active Substance: ALFACALCIDOL
  4. PROPRANOLOL [Concomitant]
     Active Substance: PROPRANOLOL\PROPRANOLOL HYDROCHLORIDE
  5. DOXAZOSIN [Concomitant]
     Active Substance: DOXAZOSIN\DOXAZOSIN MESYLATE
  6. ISOSORBIDE MONONITRATE. [Concomitant]
     Active Substance: ISOSORBIDE MONONITRATE
  7. NICORANDIL [Concomitant]
     Active Substance: NICORANDIL
  8. CILOSTAZOL. [Concomitant]
     Active Substance: CILOSTAZOL
  9. FOLIC ACID. [Concomitant]
     Active Substance: FOLIC ACID
  10. VITAMIN B COMPLEX [Concomitant]
     Active Substance: CYANOCOBALAMIN\DEXPANTHENOL\NIACINAMIDE\PYRIDOXINE HYDROCHLORIDE\RIBOFLAVIN 5^-PHOSPHATE SODIUM\THIAMINE HYDROCHLORIDE\VITAMIN B COMPLEX
  11. ASPIRIN. [Concomitant]
     Active Substance: ASPIRIN
  12. NIFEDIPINE. [Concomitant]
     Active Substance: NIFEDIPINE
  13. VITAMIN C [Concomitant]
     Active Substance: ASCORBIC ACID
  14. CLOPIDOGREL BISULFATE. [Suspect]
     Active Substance: CLOPIDOGREL BISULFATE
     Indication: CORONARY ARTERY DISEASE
     Route: 065

REACTIONS (10)
  - Pseudomonas infection [Unknown]
  - Haemoglobin decreased [Recovered/Resolved]
  - Asthenia [Unknown]
  - Rhinorrhoea [Unknown]
  - Platelet count decreased [Recovered/Resolved]
  - White blood cell count decreased [Recovered/Resolved]
  - Neutrophil count decreased [Recovered/Resolved]
  - Cough [Unknown]
  - Pancytopenia [Recovered/Resolved]
  - Pyrexia [Unknown]

NARRATIVE: CASE EVENT DATE: 20131015
